FAERS Safety Report 5026811-X (Version None)
Quarter: 2006Q2

REPORT INFORMATION
  Report Type: 
  Country: None (occurrence: None)
  Receive Date: 20060615
  Receipt Date: 20060509
  Transmission Date: 20061013
  Serious: Yes (Other)
  Sender: FDA-Public Use
  Company Number: US-GILEAD-2006-0009570

PATIENT
  Sex: Male

DRUGS (2)
  1. TRUVADA [Suspect]
  2. SUSTIVA [Concomitant]

REACTIONS (1)
  - SPINAL DISORDER [None]
